FAERS Safety Report 4676207-5 (Version None)
Quarter: 2005Q2

REPORT INFORMATION
  Report Type: 
  Country: None (occurrence: None)
  Receive Date: 20050527
  Receipt Date: 20041105
  Transmission Date: 20051028
  Serious: No
  Sender: FDA-Public Use
  Company Number: US-GLAXOSMITHKLINE-A0532862A

PATIENT
  Age: 22 Year
  Sex: Male

DRUGS (7)
  1. WELLBUTRIN XL [Suspect]
     Indication: DEPRESSION
     Dosage: 150MG PER DAY
     Route: 048
     Dates: start: 20040901
  2. PAXIL CR [Suspect]
     Dosage: 12.5MG PER DAY
     Route: 048
     Dates: start: 20041103, end: 20041107
  3. ACIPHEX [Concomitant]
  4. LOPRESSOR [Concomitant]
     Dates: end: 20041102
  5. ANTIBIOTIC [Concomitant]
     Dates: end: 20041102
  6. NEXIUM [Concomitant]
     Route: 065
  7. NEURONTIN [Concomitant]
     Route: 065

REACTIONS (13)
  - AGITATION [None]
  - CHILLS [None]
  - DIARRHOEA [None]
  - DISSOCIATION [None]
  - DYSKINESIA [None]
  - ERECTILE DYSFUNCTION [None]
  - FEAR [None]
  - HEADACHE [None]
  - INSOMNIA [None]
  - MUSCLE TIGHTNESS [None]
  - MUSCLE TWITCHING [None]
  - NAUSEA [None]
  - SLEEP DISORDER [None]
